FAERS Safety Report 9559111 (Version 2)
Quarter: 2013Q3

REPORT INFORMATION
  Report Type: Report from Study
  Country: US (occurrence: US)
  Receive Date: 20130927
  Receipt Date: 20130927
  Transmission Date: 20140515
  Serious: Yes (Other)
  Sender: FDA-Public Use
  Company Number: US-ROCHE-1281439

PATIENT
  Age: 44 Year
  Sex: Female

DRUGS (8)
  1. XOLAIR [Suspect]
     Indication: ASTHMA
     Route: 065
     Dates: start: 2011
  2. CETIRIZINE [Concomitant]
     Route: 048
  3. ALBUTEROL [Concomitant]
     Dosage: 2 PUFFS
     Route: 065
  4. SILDENAFIL [Concomitant]
     Route: 048
  5. LEVOTHYROXINE [Concomitant]
     Dosage: ^ON MONDAY - SATURDAY AND 1/2 TABLET ON SUNDAY^
     Route: 048
  6. BUDESONIDE [Concomitant]
     Dosage: 160 MCG-4.5 MCG
     Route: 065
  7. MONTELUKAST [Concomitant]
     Route: 048
  8. OMEPRAZOLE [Concomitant]
     Route: 048

REACTIONS (1)
  - Diverticulitis [Unknown]
